FAERS Safety Report 22008743 (Version 1)
Quarter: 2023Q1

REPORT INFORMATION
  Report Type: Spontaneous
  Country: US (occurrence: US)
  Receive Date: 20230219
  Receipt Date: 20230219
  Transmission Date: 20230417
  Serious: Yes (Hospitalization, Other)
  Sender: FDA-Public Use
  Company Number: US-JNJFOC-20230221787

PATIENT
  Age: 59 Year
  Sex: Female

DRUGS (6)
  1. VELETRI [Suspect]
     Active Substance: EPOPROSTENOL
     Indication: Product used for unknown indication
     Route: 042
  2. VELETRI [Suspect]
     Active Substance: EPOPROSTENOL
     Route: 042
  3. OFEV [Suspect]
     Active Substance: NINTEDANIB
     Indication: Idiopathic pulmonary fibrosis
     Route: 048
     Dates: start: 20211221
  4. OFEV [Suspect]
     Active Substance: NINTEDANIB
     Route: 048
  5. OFEV [Suspect]
     Active Substance: NINTEDANIB
     Route: 048
     Dates: start: 20211222
  6. TREPROSTINIL [Suspect]
     Active Substance: TREPROSTINIL
     Indication: Product used for unknown indication
     Route: 065

REACTIONS (24)
  - Pneumonia [Unknown]
  - Pulmonary arterial hypertension [Recovering/Resolving]
  - Full blood count decreased [Unknown]
  - Fatigue [Unknown]
  - Vomiting [Recovered/Resolved]
  - Nausea [Recovered/Resolved]
  - Pyrexia [Unknown]
  - Infection [Unknown]
  - Dyspnoea [Unknown]
  - Dehydration [Unknown]
  - Diarrhoea [Unknown]
  - Asthenia [Unknown]
  - Therapy change [Unknown]
  - Sinusitis [Unknown]
  - Nasal congestion [Unknown]
  - Peripheral swelling [Unknown]
  - Pain in extremity [Recovered/Resolved]
  - Abdominal pain upper [Unknown]
  - Dyspnoea exertional [Unknown]
  - Catheter site pruritus [Unknown]
  - Weight decreased [Unknown]
  - Headache [Recovered/Resolved]
  - Eating disorder [Unknown]
  - Sinusitis [Unknown]

NARRATIVE: CASE EVENT DATE: 20220213
